FAERS Safety Report 6481143-8 (Version None)
Quarter: 2009Q4

REPORT INFORMATION
  Report Type: 
  Country: None (occurrence: None)
  Receive Date: 20091203
  Receipt Date: 20091123
  Transmission Date: 20100525
  Serious: Yes (Hospitalization)
  Sender: FDA-Public Use
  Company Number: 220003J09AUS

PATIENT
  Age: 6 Year
  Sex: Female

DRUGS (1)
  1. SAIZEN [Suspect]
     Dosage: 0.71 MG, 1 IN 1 WEEKS, SUBCUTANEOUS
     Route: 058
     Dates: start: 20070313

REACTIONS (1)
  - CEREBRAL CYST [None]
